FAERS Safety Report 9257657 (Version 1)
Quarter: 2013Q2

REPORT INFORMATION
  Report Type: Spontaneous
  Country: FR (occurrence: FR)
  Receive Date: 20130426
  Receipt Date: 20130426
  Transmission Date: 20140414
  Serious: Yes (Death)
  Sender: FDA-Public Use
  Company Number: FR-PFIZER INC-2013126215

PATIENT
  Age: 39 Year
  Sex: Female

DRUGS (24)
  1. TAZOCILLINE [Suspect]
     Indication: CYSTITIS ESCHERICHIA
     Dosage: UNK
     Route: 042
     Dates: start: 20130212, end: 20130403
  2. SOLIRIS [Suspect]
     Indication: HAEMOLYTIC URAEMIC SYNDROME
     Dosage: 1 DF, SINGLE
     Route: 041
     Dates: start: 20130327, end: 20130327
  3. SOLIRIS [Suspect]
     Dosage: 1 DF, SINGLE
     Route: 041
     Dates: start: 20130405, end: 20130405
  4. CELLCEPT [Suspect]
     Indication: GRAFT VERSUS HOST DISEASE
     Dosage: UNK
     Dates: start: 20130320
  5. CYMEVAN [Suspect]
     Indication: CYTOMEGALOVIRUS INFECTION
     Dosage: UNK
     Route: 042
     Dates: start: 20130303
  6. NOXAFIL [Suspect]
     Indication: GASTROINTESTINAL CANDIDIASIS
     Dosage: UNK
     Route: 048
     Dates: start: 20130314, end: 20130328
  7. CANCIDAS [Suspect]
     Indication: GASTROINTESTINAL CANDIDIASIS
     Dosage: UNK
     Dates: start: 20130328
  8. INEXIUM [Suspect]
     Indication: GASTROOESOPHAGEAL REFLUX DISEASE
     Dosage: UNK
     Dates: start: 20130318, end: 20130401
  9. FOSCAVIR [Suspect]
     Indication: CYTOMEGALOVIRUS INFECTION
     Dosage: UNK
     Dates: start: 20130319, end: 20130329
  10. ZELITREX [Concomitant]
     Dosage: 500 MG, 2X/DAY
  11. CICLOSPORIN [Concomitant]
  12. SOLU-MEDROL [Concomitant]
     Indication: RASH
     Dosage: 80-40 MG
  13. HEPARIN [Concomitant]
     Indication: VENOOCCLUSIVE DISEASE
     Dosage: 80 MG/DAY
  14. DELURSAN [Concomitant]
  15. DEFIBROTIDE [Concomitant]
     Indication: VENOOCCLUSIVE DISEASE
  16. LASILIX [Concomitant]
  17. SPASFON [Concomitant]
  18. MOPRAL [Concomitant]
  19. SEROPRAM [Concomitant]
  20. HALDOL [Concomitant]
  21. STILNOX [Concomitant]
  22. CACIT D3 [Concomitant]
  23. PROCTOLOG [Concomitant]
  24. MENINGOCOCCAL VACCINE [Suspect]
     Indication: PROPHYLAXIS
     Dosage: 1 DF, SINGLE

REACTIONS (1)
  - Bone marrow failure [Fatal]
